FAERS Safety Report 5558355-0 (Version None)
Quarter: 2007Q4

REPORT INFORMATION
  Report Type: 
  Country: None (occurrence: None)
  Receive Date: 20071214
  Receipt Date: 20071204
  Transmission Date: 20080405
  Serious: Yes (Hospitalization, Other)
  Sender: FDA-Public Use
  Company Number: SE-PFIZER INC-2007102032

PATIENT
  Age: 64 Year
  Sex: Female

DRUGS (1)
  1. XANOR [Suspect]
     Dosage: DAILY DOSE:.5MG

REACTIONS (2)
  - DRUG DEPENDENCE [None]
  - MUSCLE SPASMS [None]
